FAERS Safety Report 9051236 (Version 2)
Quarter: 2013Q1

REPORT INFORMATION
  Report Type: Spontaneous
  Country: IT (occurrence: IT)
  Receive Date: 20130206
  Receipt Date: 20130225
  Transmission Date: 20140127
  Serious: Yes (Other)
  Sender: FDA-Public Use
  Company Number: IT-COVIDIEN/TYCO HEALTHCARE/MALLINCKRODT-T201300391

PATIENT
  Age: 85 None
  Sex: Female

DRUGS (1)
  1. EXALGO EXTENDED RELEASE [Suspect]
     Indication: INTERVERTEBRAL DISC DISORDER
     Dosage: 12 MG, 1 IN 1 DAY
     Route: 048
     Dates: start: 20120925, end: 20121005

REACTIONS (2)
  - Psychomotor retardation [Not Recovered/Not Resolved]
  - Confusional state [Not Recovered/Not Resolved]
